FAERS Safety Report 20708499 (Version 1)
Quarter: 2022Q2

REPORT INFORMATION
  Report Type: Spontaneous
  Country: US (occurrence: US)
  Receive Date: 20220414
  Receipt Date: 20220414
  Transmission Date: 20220720
  Serious: No
  Sender: FDA-Public Use
  Company Number: US-drreddys-SPO/USA/22/0148674

PATIENT
  Age: 31 Year
  Sex: Female

DRUGS (2)
  1. ZENATANE [Suspect]
     Active Substance: ISOTRETINOIN
     Indication: Product used for unknown indication
     Dosage: RMA ISSUE DATE:24 NOVEMBER 2021 12:00:00 AM
  2. ZENATANE [Suspect]
     Active Substance: ISOTRETINOIN
     Dosage: RMA ISSUE DATE:29 DECEMBER 2021 01:59:11 PM,29 JANUARY 2022 10:48:46 AM,03 MARCH 2022 10:38:35 AM

REACTIONS (1)
  - Adverse drug reaction [Unknown]
